FAERS Safety Report 11434018 (Version 1)
Quarter: 2015Q3

REPORT INFORMATION
  Report Type: Other
  Country: CA (occurrence: CA)
  Receive Date: 20150831
  Receipt Date: 20150831
  Transmission Date: 20151125
  Serious: Yes (Life-Threatening, Other)
  Sender: FDA-Public Use
  Company Number: CA-APOTEX-2015AP011556

PATIENT
  Age: 62 Year
  Sex: Male

DRUGS (2)
  1. AVODART [Concomitant]
     Active Substance: DUTASTERIDE
     Indication: PRODUCT USED FOR UNKNOWN INDICATION
  2. APO-ALENDRONATE [Suspect]
     Active Substance: ALENDRONATE SODIUM
     Indication: OSTEOPOROSIS

REACTIONS (8)
  - Blood sodium abnormal [Recovering/Resolving]
  - Muscle rigidity [Recovering/Resolving]
  - Movement disorder [Recovering/Resolving]
  - Muscle twitching [Recovering/Resolving]
  - Pain in extremity [Recovering/Resolving]
  - Tendon disorder [Recovering/Resolving]
  - Muscle spasms [Recovering/Resolving]
  - Reaction to drug excipients [Recovering/Resolving]
